FAERS Safety Report 19403236 (Version 1)
Quarter: 2021Q2

REPORT INFORMATION
  Report Type: Spontaneous
  Country: US (occurrence: US)
  Receive Date: 20210610
  Receipt Date: 20210610
  Transmission Date: 20210717
  Serious: Yes (Hospitalization, Other)
  Sender: FDA-Public Use
  Company Number: None

PATIENT
  Age: 62 Year
  Sex: Female
  Weight: 53.1 kg

DRUGS (1)
  1. PREGABALIN. [Suspect]
     Active Substance: PREGABALIN
     Indication: NEURALGIA
     Dosage: ?          QUANTITY:28 CAPSULE(S);?
     Route: 048
     Dates: start: 20210610, end: 20210610

REACTIONS (3)
  - Visual impairment [None]
  - Seizure [None]
  - Nausea [None]

NARRATIVE: CASE EVENT DATE: 20210610
